FAERS Safety Report 8163288-X (Version None)
Quarter: 2012Q1

REPORT INFORMATION
  Report Type: 
  Country: None (occurrence: None)
  Receive Date: 20120224
  Receipt Date: 20120222
  Transmission Date: 20120608
  Serious: No
  Sender: FDA-Public Use
  Company Number: US-PFIZER INC-2012047225

PATIENT
  Sex: Male
  Weight: 86.17 kg

DRUGS (7)
  1. FUROSEMIDE [Concomitant]
     Indication: CARDIAC DISORDER
     Dosage: 40 MG, DAILY
  2. MULTI-VITAMINS [Concomitant]
     Dosage: UNK, DAILY
  3. ALAVERT [Suspect]
     Indication: SINUSITIS
     Dosage: 10 MG, DAILY
     Route: 048
     Dates: start: 20120201
  4. INSULIN [Concomitant]
     Indication: DIABETES MELLITUS
     Dosage: UNK, DAILY
  5. DIGOXIN [Concomitant]
     Indication: HEART RATE IRREGULAR
     Dosage: 1.25 MG, DAILY
  6. METOPROLOL [Concomitant]
     Indication: CARDIAC DISORDER
     Dosage: 25 MG, DAILY
  7. POTASSIUM CHLORIDE [Concomitant]
     Indication: CARDIAC DISORDER
     Dosage: 30 MEQ, DAILY

REACTIONS (2)
  - CIRCUMSTANCE OR INFORMATION CAPABLE OF LEADING TO MEDICATION ERROR [None]
  - BLOOD GLUCOSE INCREASED [None]
